FAERS Safety Report 6578767-6 (Version None)
Quarter: 2010Q1

REPORT INFORMATION
  Report Type: 
  Country: None (occurrence: None)
  Receive Date: 20100202
  Receipt Date: 20100122
  Transmission Date: 20100710
  Serious: Yes (Other)
  Sender: FDA-Public Use
  Company Number: 2010AP000148

PATIENT
  Sex: Female

DRUGS (1)
  1. PAROXETINE HCL [Suspect]

REACTIONS (2)
  - ANXIETY [None]
  - MENTAL DISORDER [None]
